FAERS Safety Report 24164525 (Version 1)
Quarter: 2024Q3

REPORT INFORMATION
  Report Type: Spontaneous
  Country: GB (occurrence: GB)
  Receive Date: 20240801
  Receipt Date: 20240801
  Transmission Date: 20241016
  Serious: Yes (Other)
  Sender: TEVA
  Company Number: None

PATIENT
  Age: 32 Year
  Sex: Male

DRUGS (5)
  1. HALOPERIDOL [Suspect]
     Active Substance: HALOPERIDOL
     Route: 065
  2. OLANZAPINE [Concomitant]
     Active Substance: OLANZAPINE
     Dosage: AT NIGHT
     Route: 048
     Dates: start: 20231207
  3. LANSOPRAZOLE [Concomitant]
     Active Substance: LANSOPRAZOLE
     Route: 048
     Dates: start: 20240102
  4. LAMOTRIGINE [Concomitant]
     Active Substance: LAMOTRIGINE
     Route: 048
     Dates: start: 20240102
  5. KEMADRIN [Concomitant]
     Active Substance: PROCYCLIDINE HYDROCHLORIDE
     Route: 048
     Dates: start: 20240102

REACTIONS (1)
  - Trismus [Recovering/Resolving]
